FAERS Safety Report 16914146 (Version 1)
Quarter: 2019Q4

REPORT INFORMATION
  Report Type: Spontaneous
  Country: US (occurrence: US)
  Receive Date: 20191014
  Receipt Date: 20191014
  Transmission Date: 20200122
  Serious: No
  Sender: FDA-Public Use
  Company Number: US-PFIZER INC-2019438999

PATIENT
  Age: 59 Year
  Sex: Female

DRUGS (1)
  1. AROMASIN [Suspect]
     Active Substance: EXEMESTANE
     Indication: BREAST CANCER METASTATIC
     Dosage: 25 MG, 1X/DAY (TAKE 1 TABLET (25 MG TOTAL) BY MOUTH EVERY MORNING AFTER BREAKFAST)
     Route: 048
     Dates: start: 20190710

REACTIONS (1)
  - Nausea [Not Recovered/Not Resolved]
